FAERS Safety Report 6015021-5 (Version None)
Quarter: 2008Q4

REPORT INFORMATION
  Report Type: 
  Country: None (occurrence: None)
  Receive Date: 20081221
  Receipt Date: 20081216
  Transmission Date: 20090506
  Serious: Yes (Death, Other)
  Sender: FDA-Public Use
  Company Number: PHHY2008JP32362

PATIENT
  Age: 78 Year
  Sex: Male

DRUGS (3)
  1. GLEEVEC [Suspect]
     Indication: GASTROINTESTINAL STROMAL TUMOUR
     Dosage: 400 MG
     Route: 048
     Dates: start: 20080818, end: 20081101
  2. FAMOTIDINE [Concomitant]
     Dosage: 4 MG
     Route: 048
     Dates: start: 20080818, end: 20081101
  3. PROMAC [Concomitant]
     Dosage: 1 G
     Route: 048
     Dates: start: 20080818, end: 20081101

REACTIONS (3)
  - FLUID RETENTION [None]
  - GASTROINTESTINAL PERFORATION [None]
  - TUMOUR NECROSIS [None]
